FAERS Safety Report 7996048-0 (Version None)
Quarter: 2011Q4

REPORT INFORMATION
  Report Type: 
  Country: None (occurrence: None)
  Receive Date: 20111220
  Receipt Date: 20111207
  Transmission Date: 20120403
  Serious: Yes (Other)
  Sender: FDA-Public Use
  Company Number: PHHY2011JP100387

PATIENT
  Sex: Male
  Weight: 60 kg

DRUGS (6)
  1. APLACE [Concomitant]
     Dosage: 300 MG, UNK
     Route: 048
     Dates: start: 20040627
  2. RHYTHMY [Concomitant]
     Dosage: 2 MG, UNK
     Route: 048
     Dates: start: 20040719
  3. TICLOPIDINE HCL [Concomitant]
     Dosage: 200 MG, UNK
     Route: 048
     Dates: start: 19940328
  4. MEVARICH [Concomitant]
     Dosage: 5 MG, UNK
     Route: 048
     Dates: start: 20041023
  5. TAMSULOSIN HCL [Concomitant]
     Dosage: 0.2 MG, UNK
     Route: 048
     Dates: start: 20041218
  6. AMLODIPINE BESYLATE/VALSARTAN [Suspect]
     Indication: HYPERTENSION
     Dosage: 1 DF DAILY
     Route: 048
     Dates: start: 20101106, end: 20110714

REACTIONS (5)
  - METASTASES TO BONE [None]
  - PAIN [None]
  - LUNG CARCINOMA CELL TYPE UNSPECIFIED RECURRENT [None]
  - BLOOD PRESSURE DECREASED [None]
  - DECREASED APPETITE [None]
